FAERS Safety Report 9012157 (Version 1)
Quarter: 2012Q4

REPORT INFORMATION
  Report Type: Spontaneous
  Country: US (occurrence: None)
  Receive Date: 20121227
  Receipt Date: 20121227
  Transmission Date: 20130627
  Serious: Yes (Death)
  Sender: FDA-Public Use
  Company Number: UTC-026947

PATIENT
  Age: 55 Year
  Sex: Female
  Weight: 100.4 kg

DRUGS (3)
  1. TYVASO (6 MICROGRAM, AEROSOL FOR INHALATION) (TREPROSTINIL SODIUM) [Suspect]
     Indication: PULMONARY HYPERTENSION SECONDARY
     Route: 055
     Dates: start: 20110202
  2. REVATO (SILDENAFIL CITRATE) [Concomitant]
  3. ACETYLSALICYLIC ACID [Concomitant]

REACTIONS (2)
  - Respiratory failure [None]
  - Sepsis [None]
